FAERS Safety Report 13830929 (Version 1)
Quarter: 2017Q3

REPORT INFORMATION
  Report Type: Spontaneous
  Country: GB (occurrence: GB)
  Receive Date: 20170803
  Receipt Date: 20170803
  Transmission Date: 20171127
  Serious: Yes (Disabling)
  Sender: FDA-Public Use
  Company Number: GB-TEVA-791755ACC

PATIENT
  Age: 27 Year
  Sex: Female
  Weight: 65 kg

DRUGS (1)
  1. OFLOXACIN. [Suspect]
     Active Substance: OFLOXACIN
     Indication: PELVIC INFLAMMATORY DISEASE
     Dosage: 800 MILLIGRAM DAILY;
     Route: 048
     Dates: start: 20170526, end: 20170602

REACTIONS (18)
  - Decreased interest [Not Recovered/Not Resolved]
  - Paraesthesia [Not Recovered/Not Resolved]
  - Candida infection [Not Recovered/Not Resolved]
  - Eye discharge [Not Recovered/Not Resolved]
  - Hepatic function abnormal [Not Recovered/Not Resolved]
  - Diarrhoea [Not Recovered/Not Resolved]
  - Alopecia [Not Recovered/Not Resolved]
  - Vitreous floaters [Not Recovered/Not Resolved]
  - Back pain [Not Recovered/Not Resolved]
  - Swelling face [Recovering/Resolving]
  - Tendon disorder [Not Recovered/Not Resolved]
  - Tinnitus [Not Recovered/Not Resolved]
  - Ocular hyperaemia [Not Recovered/Not Resolved]
  - Adjustment disorder with depressed mood [Not Recovered/Not Resolved]
  - Bladder pain [Not Recovered/Not Resolved]
  - Neck pain [Not Recovered/Not Resolved]
  - Nerve injury [Not Recovered/Not Resolved]
  - Facial nerve disorder [Not Recovered/Not Resolved]

NARRATIVE: CASE EVENT DATE: 20170531
